FAERS Safety Report 18967252 (Version 1)
Quarter: 2021Q1

REPORT INFORMATION
  Report Type: Spontaneous
  Country: FR (occurrence: FR)
  Receive Date: 20210304
  Receipt Date: 20210304
  Transmission Date: 20210420
  Serious: Yes (Hospitalization)
  Sender: FDA-Public Use
  Company Number: FR-SUN PHARMACEUTICAL INDUSTRIES LTD-2021RR-284129

PATIENT
  Age: 81 Year
  Sex: Female

DRUGS (2)
  1. PARACETAMOL [Suspect]
     Active Substance: ACETAMINOPHEN
     Indication: POISONING DELIBERATE
     Dosage: 10 GRAMS, IN TOTAL
     Route: 048
     Dates: start: 20210115, end: 20210115
  2. LAMALINE (ACETAMINOPHEN\CAFFEINE\OPIUM) [Suspect]
     Active Substance: ACETAMINOPHEN\CAFFEINE\OPIUM
     Indication: POISONING DELIBERATE
     Dosage: 8 DOSAGE FORM, IN TOTAL
     Route: 048
     Dates: start: 20210115, end: 20210115

REACTIONS (3)
  - Vomiting [Recovered/Resolved]
  - Analgesic drug level increased [Recovered/Resolved]
  - Nausea [Recovered/Resolved]

NARRATIVE: CASE EVENT DATE: 20210115
